FAERS Safety Report 25211156 (Version 1)
Quarter: 2025Q2

REPORT INFORMATION
  Report Type: Spontaneous
  Country: RO (occurrence: RO)
  Receive Date: 20250417
  Receipt Date: 20250417
  Transmission Date: 20250716
  Serious: Yes (Other)
  Sender: MERCK SHARP & DOHME LLC
  Company Number: RO-009507513-2275086

PATIENT
  Sex: Female

DRUGS (1)
  1. DORAVIRINE\LAMIVUDINE\TENOFOVIR DISOPROXIL FUMARATE [Suspect]
     Active Substance: DORAVIRINE\LAMIVUDINE\TENOFOVIR DISOPROXIL FUMARATE
     Indication: HIV infection WHO clinical stage II
     Dosage: ONE 100/300/245 MG TABLET ORALLY ONCE DAILY, WITH OR WITHOUT FOOD
     Route: 048
     Dates: start: 20240806

REACTIONS (13)
  - Interstitial lung disease [Unknown]
  - Candida infection [Unknown]
  - Dehydration [Unknown]
  - Iron deficiency [Unknown]
  - Nephrolithiasis [Unknown]
  - Ear infection [Unknown]
  - Enterocolitis [Unknown]
  - Respiratory tract infection viral [Unknown]
  - Liver disorder [Unknown]
  - Eating disorder [Unknown]
  - Treatment noncompliance [Unknown]
  - Bacterial infection [Unknown]
  - Electrolyte imbalance [Unknown]

NARRATIVE: CASE EVENT DATE: 20240101
